FAERS Safety Report 23392269 (Version 3)
Quarter: 2025Q3

REPORT INFORMATION
  Report Type: Spontaneous
  Country: CA (occurrence: CA)
  Receive Date: 20240111
  Receipt Date: 20250708
  Transmission Date: 20251020
  Serious: Yes (Other)
  Sender: MYLAN
  Company Number: CA-MYLANLABS-2023M1136939

PATIENT
  Sex: Male

DRUGS (4)
  1. EPIPEN [Suspect]
     Active Substance: EPINEPHRINE
     Indication: Hypersensitivity
  2. EPIPEN [Suspect]
     Active Substance: EPINEPHRINE
     Route: 065
  3. EPIPEN [Suspect]
     Active Substance: EPINEPHRINE
     Route: 065
  4. EPIPEN [Suspect]
     Active Substance: EPINEPHRINE

REACTIONS (3)
  - Drug dose omission by device [Unknown]
  - Device failure [Unknown]
  - Needle issue [Unknown]
